FAERS Safety Report 6078914-9 (Version None)
Quarter: 2009Q1

REPORT INFORMATION
  Report Type: 
  Country: None (occurrence: None)
  Receive Date: 20090216
  Receipt Date: 20090114
  Transmission Date: 20090719
  Serious: No
  Sender: FDA-Public Use
  Company Number: US-BAYER-200911227NA

PATIENT
  Age: 19 Year
  Sex: Female
  Weight: 65 kg

DRUGS (3)
  1. OCELLA [Suspect]
     Indication: CONTRACEPTION
     Route: 048
     Dates: start: 20081001
  2. OCELLA [Suspect]
     Route: 048
     Dates: start: 20090111
  3. NORVASC [Concomitant]
     Indication: HYPERTENSION

REACTIONS (2)
  - ABDOMINAL PAIN LOWER [None]
  - POLLAKIURIA [None]
